FAERS Safety Report 5810769-7 (Version None)
Quarter: 2008Q3

REPORT INFORMATION
  Report Type: 
  Country: None (occurrence: None)
  Receive Date: 20080710
  Receipt Date: 20080624
  Transmission Date: 20090109
  Serious: Yes (Hospitalization, Other)
  Sender: FDA-Public Use
  Company Number: CLOF-10770

PATIENT
  Age: 67 Year
  Sex: Female

DRUGS (3)
  1. CLOFARABINE (CLOFARABINE) [Suspect]
     Indication: MYELOID LEUKAEMIA
     Dosage: 30 MG/M2, QDX5, INTRAVENOUS; 20 MG/M2, QDX5, INTRAVENOUS
     Route: 042
     Dates: start: 20071031, end: 20071104
  2. CLOFARABINE (CLOFARABINE) [Suspect]
     Indication: MYELOID LEUKAEMIA
     Dosage: 30 MG/M2, QDX5, INTRAVENOUS; 20 MG/M2, QDX5, INTRAVENOUS
     Route: 042
     Dates: start: 20071129, end: 20071203
  3. CLOFARABINE (CLOFARABINE) [Suspect]

REACTIONS (5)
  - ANAEMIA [None]
  - HAEMATEMESIS [None]
  - MELAENA [None]
  - THROMBOCYTOPENIA [None]
  - UPPER GASTROINTESTINAL HAEMORRHAGE [None]
